FAERS Safety Report 4334958-6 (Version None)
Quarter: 2004Q2

REPORT INFORMATION
  Report Type: 
  Country: None (occurrence: None)
  Receive Date: 20040405
  Receipt Date: 20040319
  Transmission Date: 20050107
  Serious: Yes (Disabling)
  Sender: FDA-Public Use
  Company Number: DSA_24134_2004

PATIENT
  Age: 20 Year
  Sex: Female

DRUGS (1)
  1. LORAZEPAM [Suspect]
     Dosage: VAR ONCE PO
     Route: 048
     Dates: start: 20040229, end: 20040229

REACTIONS (3)
  - ANTEROGRADE AMNESIA [None]
  - SEXUAL ABUSE [None]
  - SOMNOLENCE [None]
